FAERS Safety Report 16544017 (Version 1)
Quarter: 2019Q3

REPORT INFORMATION
  Report Type: Report from Study
  Country: ZA (occurrence: ZA)
  Receive Date: 20190709
  Receipt Date: 20190709
  Transmission Date: 20191004
  Serious: Yes (Disabling)
  Sender: FDA-Public Use
  Company Number: ZA-SA-2019SA181484

PATIENT
  Age: 62 Year
  Sex: Male

DRUGS (13)
  1. DIAGLUCIDE [Concomitant]
     Active Substance: GLICLAZIDE
     Dosage: 60 MG, BID BEFORE BREAKFAST AND BEFORE SUPPER
     Dates: start: 20190326
  2. PLASMOQUINE [Concomitant]
     Active Substance: CHLOROQUINE SULFATE
     Dosage: 200 MG, QD AFTER BREAKFAST
     Dates: start: 19990326
  3. ECOTRIN [Concomitant]
     Active Substance: ASPIRIN
     Dosage: 81 MG, QD AFTER BREAKFAST
     Dates: start: 19990326
  4. ADCO-BISOCOR [Concomitant]
     Active Substance: BISOPROLOL FUMARATE
     Dosage: 5 MG, QD AFTER BREAKFAST
     Dates: start: 19990326
  5. ADCO-SIMVASTATIN [Concomitant]
     Active Substance: SIMVASTATIN
     Dosage: 20 MG, HS
     Dates: start: 19990326
  6. PREDNISONE. [Concomitant]
     Active Substance: PREDNISONE
     Dosage: 10 MG, Q3W
     Dates: start: 19990326
  7. OPTISULIN (INSULIN GLARGINE) [Suspect]
     Active Substance: INSULIN GLARGINE
     Dosage: 14 U, QD BEFORE BREAKFAST
     Dates: start: 20190322
  8. NO STUDY DRUG GIVEN [Suspect]
     Active Substance: INVESTIGATIONAL PRODUCT
     Dosage: UNK
  9. METFORMIN [Concomitant]
     Active Substance: METFORMIN HYDROCHLORIDE
     Dosage: 1000 MG, BID (BEFORE BREAKFAST, BEFORE SUPPER)
     Dates: start: 20190326
  10. LOSARTAN CO UNICORN [Concomitant]
     Dosage: 100 MG, QD AFTER BREAKFAST
     Dates: start: 19990326
  11. PANTOR [Concomitant]
     Active Substance: PANTOPRAZOLE SODIUM
     Dosage: 40 MG, QD AFTER BREAKFAST
     Dates: start: 19990326
  12. METHOTREXATE. [Concomitant]
     Active Substance: METHOTREXATE
     Dosage: 2.5 MG
     Dates: start: 19990326
  13. FOLIC ACID. [Concomitant]
     Active Substance: FOLIC ACID
     Dosage: 5 MG, QD AFTER BREAKFAST
     Dates: start: 19990326

REACTIONS (1)
  - Ocular discomfort [Not Recovered/Not Resolved]
